FAERS Safety Report 5982654-1 (Version None)
Quarter: 2008Q4

REPORT INFORMATION
  Report Type: 
  Country: None (occurrence: None)
  Receive Date: 20081208
  Receipt Date: 20080527
  Transmission Date: 20090506
  Serious: Yes (Other)
  Sender: FDA-Public Use
  Company Number: US-AMGEN-STX264116

PATIENT
  Sex: Male
  Weight: 89 kg

DRUGS (11)
  1. ENBREL [Suspect]
     Indication: PSORIATIC ARTHROPATHY
     Route: 058
     Dates: start: 20021201
  2. ENBREL [Suspect]
     Indication: PSORIASIS
  3. MELOXICAM [Concomitant]
  4. PAXIL [Concomitant]
  5. TOPROL-XL [Concomitant]
  6. VICODIN [Concomitant]
  7. SULFASALAZINE [Concomitant]
     Dates: start: 20070901, end: 20080101
  8. ASPIRIN [Concomitant]
  9. PREDNISONE TAB [Concomitant]
  10. INDOMETHACIN [Concomitant]
  11. FISH OIL [Concomitant]

REACTIONS (4)
  - ARTHRALGIA [None]
  - BACK PAIN [None]
  - HEPATITIS B [None]
  - NECK PAIN [None]
